FAERS Safety Report 5343408-2 (Version None)
Quarter: 2007Q2

REPORT INFORMATION
  Report Type: 
  Country: None (occurrence: None)
  Receive Date: 20070531
  Receipt Date: 20070516
  Transmission Date: 20071010
  Serious: Yes (Other)
  Sender: FDA-Public Use
  Company Number: 2007BM000055

PATIENT
  Age: 22 Year
  Sex: Male

DRUGS (3)
  1. PREDNISOLONE [Suspect]
     Indication: ALLERGIC GRANULOMATOUS ANGIITIS
     Dosage: SEE IMAGE
     Route: 048
  2. PREDNISOLONE [Suspect]
     Indication: ALLERGIC GRANULOMATOUS ANGIITIS
     Dosage: SEE IMAGE
     Route: 048
     Dates: start: 20020101
  3. ORAPRED [Suspect]

REACTIONS (2)
  - DISSEMINATED TUBERCULOSIS [None]
  - GRANULOMATOUS LIVER DISEASE [None]
